FAERS Safety Report 9307525 (Version 3)
Quarter: 2013Q4

REPORT INFORMATION
  Report Type: Spontaneous
  Country: US (occurrence: US)
  Receive Date: 20130524
  Receipt Date: 20131107
  Transmission Date: 20140711
  Serious: Yes (Hospitalization, Other)
  Sender: FDA-Public Use
  Company Number: US-BAYER-2013-062161

PATIENT
  Age: 32 Year
  Sex: Female
  Weight: 89.34 kg

DRUGS (2)
  1. MIRENA [Suspect]
     Indication: CONTRACEPTION
     Dosage: 20 MCG/24HR, CONT
     Route: 015
     Dates: start: 20080226, end: 20110505
  2. MIRENA [Suspect]
     Indication: MENORRHAGIA

REACTIONS (9)
  - Uterine perforation [None]
  - Pregnancy with contraceptive device [None]
  - Premature delivery [None]
  - Injury [None]
  - Abdominal pain lower [None]
  - Drug ineffective [None]
  - Device dislocation [None]
  - Emotional distress [None]
  - Menorrhagia [None]
